FAERS Safety Report 6673825-X (Version None)
Quarter: 2010Q2

REPORT INFORMATION
  Report Type: 
  Country: None (occurrence: None)
  Receive Date: 20100407
  Receipt Date: 20100402
  Transmission Date: 20101027
  Serious: Yes (Life-Threatening, Hospitalization)
  Sender: FDA-Public Use
  Company Number: 1000012980

PATIENT
  Age: 78 Year
  Sex: Female

DRUGS (15)
  1. NEBIVOLOL HCL [Suspect]
     Dates: start: 20100301
  2. APIXABAN (DOUBLE-BLIND) [Suspect]
     Indication: THROMBOSIS PROPHYLAXIS
     Dosage: 1 DOSAGE FORMS (1 DOSAGE FORMS, 1 IN 1 D), ORAL
     Route: 048
     Dates: start: 20100310, end: 20100310
  3. WARFARIN SODIUM [Suspect]
     Indication: THROMBOSIS PROPHYLAXIS
  4. CALCIUM [Concomitant]
  5. CYMBALTA [Concomitant]
  6. DOCOSAHEXAENOIC ACID [Concomitant]
  7. FISH OIL [Concomitant]
  8. LASIX [Concomitant]
  9. LISINOPRIL [Concomitant]
  10. METFORMIN [Concomitant]
  11. PENICILLIN [Concomitant]
  12. PRILOSEC [Concomitant]
  13. SYNTHROID [Concomitant]
  14. TRAMADOL HCL [Concomitant]
  15. VERAPAMIL [Concomitant]

REACTIONS (20)
  - ABASIA [None]
  - ALANINE AMINOTRANSFERASE INCREASED [None]
  - ASPARTATE AMINOTRANSFERASE INCREASED [None]
  - ASTHENIA [None]
  - ATRIAL FIBRILLATION [None]
  - BLOOD GLUCOSE INCREASED [None]
  - BLOOD POTASSIUM INCREASED [None]
  - BLOOD UREA INCREASED [None]
  - BRADYCARDIA [None]
  - CARBON DIOXIDE DECREASED [None]
  - DIARRHOEA [None]
  - EATING DISORDER [None]
  - ELECTROCARDIOGRAM QT PROLONGED [None]
  - ELECTROCARDIOGRAM T WAVE INVERSION [None]
  - GENERAL PHYSICAL HEALTH DETERIORATION [None]
  - MALAISE [None]
  - PRESYNCOPE [None]
  - PULSE ABSENT [None]
  - SHOCK [None]
  - WHITE BLOOD CELL COUNT INCREASED [None]
